FAERS Safety Report 17044978 (Version 3)
Quarter: 2019Q4

REPORT INFORMATION
  Report Type: Spontaneous
  Country: US (occurrence: US)
  Receive Date: 20191118
  Receipt Date: 20191231
  Transmission Date: 20200122
  Serious: Yes (Other)
  Sender: FDA-Public Use
  Company Number: US-SA-2019SA315049

PATIENT
  Age: 67 Year
  Sex: Female

DRUGS (2)
  1. KEVZARA [Suspect]
     Active Substance: SARILUMAB
     Dosage: 200 MG, QOW
     Route: 058
     Dates: start: 20190620
  2. BD [HYALURONATE SODIUM] [Concomitant]
     Dosage: BD PEN NEEDLE MINI

REACTIONS (4)
  - Cataract [Not Recovered/Not Resolved]
  - Ill-defined disorder [Unknown]
  - Surgery [Unknown]
  - Sinusitis [Not Recovered/Not Resolved]
